FAERS Safety Report 17560414 (Version 3)
Quarter: 2022Q1

REPORT INFORMATION
  Report Type: Spontaneous
  Country: US (occurrence: US)
  Receive Date: 20200319
  Receipt Date: 20220107
  Transmission Date: 20220423
  Serious: No
  Sender: FDA-Public Use
  Company Number: US-PFIZER INC-2020118408

PATIENT
  Age: 67 Year
  Sex: Male

DRUGS (2)
  1. LYRICA [Suspect]
     Active Substance: PREGABALIN
     Indication: Seizure
     Dosage: 150 MG, 3X/DAY (AT 6AM, 2PM AND 9PM)
  2. LYRICA [Suspect]
     Active Substance: PREGABALIN
     Indication: Pain
     Dosage: 75 MG, 2X/DAY (AT 10:30AM AND 4:30PM)

REACTIONS (4)
  - Speech disorder [Unknown]
  - Mobility decreased [Unknown]
  - Off label use [Unknown]
  - Drug ineffective [Unknown]
